FAERS Safety Report 7756761-7 (Version None)
Quarter: 2011Q3

REPORT INFORMATION
  Report Type: 
  Country: None (occurrence: None)
  Receive Date: 20110916
  Receipt Date: 20110906
  Transmission Date: 20111222
  Serious: Yes (Other)
  Sender: FDA-Public Use
  Company Number: US-BAYER-2011-014471

PATIENT
  Age: 43 Year
  Sex: Female
  Weight: 106 kg

DRUGS (6)
  1. MULTIVITAMIN [Concomitant]
     Indication: VITAMIN SUPPLEMENTATION
     Dosage: UNK UNK, QD
     Route: 048
  2. CALTRATE + D [CALCIUM,VITAMIN D NOS] [Concomitant]
     Indication: VITAMIN SUPPLEMENTATION
     Dosage: UNK UNK, QD
     Route: 048
  3. LOVAZA [Concomitant]
     Indication: SUPPLEMENTATION THERAPY
     Dosage: UNK UNK, QD
     Route: 048
  4. YASMIN [Suspect]
     Indication: CONTRACEPTION
     Dosage: UNK
     Route: 048
     Dates: start: 20040101, end: 20070101
  5. ZEGERID [Concomitant]
     Indication: ANTACID THERAPY
     Dosage: UNK UNK, QD
     Route: 048
  6. DROSPIRENONE AND ETHINYL ESTRADIOL [Suspect]
     Indication: CONTRACEPTION
     Dosage: UNK
     Route: 048
     Dates: start: 20070101, end: 20100101

REACTIONS (4)
  - INJURY [None]
  - CHOLELITHIASIS [None]
  - CHOLECYSTITIS CHRONIC [None]
  - PAIN [None]
